FAERS Safety Report 25123961 (Version 1)
Quarter: 2025Q1

REPORT INFORMATION
  Report Type: Spontaneous
  Country: IN (occurrence: IN)
  Receive Date: 20250326
  Receipt Date: 20250326
  Transmission Date: 20250409
  Serious: Yes (Death)
  Sender: RANBAXY
  Company Number: IN-SUN PHARMACEUTICAL INDUSTRIES LTD-2025R1-501064

PATIENT
  Age: 3 Decade
  Sex: Female

DRUGS (3)
  1. PANTOPRAZOLE [Suspect]
     Active Substance: PANTOPRAZOLE
     Indication: Poisoning
     Route: 042
  2. PENICILLAMINE [Concomitant]
     Active Substance: PENICILLAMINE
     Indication: Poisoning
     Dosage: 500 MILLIGRAM, BID
     Route: 048
  3. PANTOPRAZOLE [Concomitant]
     Active Substance: PANTOPRAZOLE
     Indication: Poisoning
     Route: 042

REACTIONS (1)
  - Drug ineffective [Fatal]
